FAERS Safety Report 5096380-7 (Version None)
Quarter: 2006Q3

REPORT INFORMATION
  Report Type: 
  Country: None (occurrence: None)
  Receive Date: 20060831
  Receipt Date: 20060823
  Transmission Date: 20061208
  Serious: Yes (Other)
  Sender: FDA-Public Use
  Company Number: 229059

PATIENT
  Sex: 0

DRUGS (1)
  1. RITUXAN [Suspect]
     Indication: URTICARIA

REACTIONS (2)
  - GOITRE [None]
  - THYROGLOBULIN INCREASED [None]
